FAERS Safety Report 7039503-2 (Version None)
Quarter: 2010Q3

REPORT INFORMATION
  Report Type: 
  Country: None (occurrence: None)
  Receive Date: 20100929
  Receipt Date: 20100610
  Transmission Date: 20110219
  Serious: No
  Sender: FDA-Public Use
  Company Number: US-WYE-H15584410

PATIENT
  Age: 55 Year
  Sex: Female

DRUGS (5)
  1. PRISTIQ [Suspect]
     Indication: DEPRESSION
     Dates: start: 20100609
  2. LOVASTATIN [Concomitant]
  3. METHIMAZOLE [Concomitant]
  4. METOPROLOL SUCCINATE [Concomitant]
  5. HYDROCHLOROTHIAZIDE [Concomitant]

REACTIONS (1)
  - HEADACHE [None]
